FAERS Safety Report 25128022 (Version 1)
Quarter: 2025Q1

REPORT INFORMATION
  Report Type: Spontaneous
  Country: US (occurrence: US)
  Receive Date: 20250327
  Receipt Date: 20250327
  Transmission Date: 20250408
  Serious: No
  Sender: ROCHE
  Company Number: US-ROCHE-10000233908

PATIENT
  Age: 62 Year
  Sex: Female
  Weight: 61.23 kg

DRUGS (2)
  1. XOLAIR PFS [Suspect]
     Active Substance: OMALIZUMAB
     Indication: Asthma
     Dosage: 150 MG/1 ML IN EACH ARM
     Route: 030
     Dates: start: 2012, end: 2014
  2. XOLAIR PFS [Suspect]
     Active Substance: OMALIZUMAB
     Dosage: 300 MG/2 ML
     Route: 030
     Dates: start: 20250214

REACTIONS (5)
  - Off label use [Unknown]
  - Pain in extremity [Not Recovered/Not Resolved]
  - Product colour issue [Unknown]
  - Injection site pain [Unknown]
  - Off label use [Unknown]

NARRATIVE: CASE EVENT DATE: 20120101
